FAERS Safety Report 4777884-0 (Version None)
Quarter: 2005Q3

REPORT INFORMATION
  Report Type: 
  Country: None (occurrence: None)
  Receive Date: 20050921
  Receipt Date: 20050908
  Transmission Date: 20060218
  Serious: Yes (Hospitalization)
  Sender: FDA-Public Use
  Company Number: 2002108426FR

PATIENT
  Age: 52 Year
  Sex: Male

DRUGS (7)
  1. DOXORUBICIN HCL [Suspect]
     Indication: HODGKIN'S DISEASE
     Dosage: INTRAVENOUS
     Route: 042
     Dates: start: 20020109, end: 20020117
  2. CYCLOPHOSPHAMIDE [Suspect]
     Indication: HODGKIN'S DISEASE
     Dosage: INTRAVENOUS
     Route: 042
     Dates: start: 20020109, end: 20020117
  3. NATULAN (PROCARBAZINE HYDROCHLORIDE) [Suspect]
     Indication: HODGKIN'S DISEASE
     Dosage: INTRAVENOUS
     Route: 042
     Dates: start: 20020109, end: 20020117
  4. VINCRISTINE SULFATE [Suspect]
     Indication: HODGKIN'S DISEASE
     Dosage: INTRAVENOUS
     Route: 042
     Dates: start: 20020109, end: 20020117
  5. BLEOMYCIN [Suspect]
     Indication: HODGKIN'S DISEASE
  6. ETOPOSIDE [Suspect]
     Indication: HODGKIN'S DISEASE
  7. SOLU-MEDROL [Concomitant]

REACTIONS (2)
  - BLINDNESS [None]
  - OPTIC NEURITIS [None]
